FAERS Safety Report 7199168-6 (Version None)
Quarter: 2010Q4

REPORT INFORMATION
  Report Type: 
  Country: None (occurrence: None)
  Receive Date: 20101223
  Receipt Date: 20101223
  Transmission Date: 20110411
  Serious: No
  Sender: FDA-Public Use
  Company Number: None

PATIENT
  Sex: Female
  Weight: 99.9 kg

DRUGS (1)
  1. TAXOTERE [Suspect]
     Dosage: 154 MG
     Dates: end: 20100916

REACTIONS (2)
  - ANAEMIA [None]
  - BLOOD MAGNESIUM DECREASED [None]
